FAERS Safety Report 12147928 (Version 2)
Quarter: 2016Q2

REPORT INFORMATION
  Report Type: Report from Study
  Country: JP (occurrence: JP)
  Receive Date: 20160304
  Receipt Date: 20160429
  Transmission Date: 20160815
  Serious: Yes (Death)
  Sender: FDA-Public Use
  Company Number: PHJP2014JP014908

PATIENT
  Age: 37 Year
  Sex: Female
  Weight: 45 kg

DRUGS (19)
  1. CERTICAN [Suspect]
     Active Substance: EVEROLIMUS
     Indication: RENAL TRANSPLANT
     Dosage: 1 MG, QD
     Route: 048
     Dates: start: 20120912, end: 20131204
  2. CELLCEPT [Concomitant]
     Active Substance: MYCOPHENOLATE MOFETIL\MYCOPHENOLATE MOFETIL HYDROCHLORIDE
     Dosage: 1000 MG, UNK
     Route: 048
     Dates: start: 20130424
  3. GRACEPTOR [Concomitant]
     Active Substance: TACROLIMUS
     Dosage: 2 MG, UNK
     Route: 048
     Dates: start: 20121104, end: 20130423
  4. MEDROL//METHYLPREDNISOLONE [Concomitant]
     Indication: RENAL TRANSPLANT
     Dosage: 2 MG, QD
     Route: 048
  5. MEDROL//METHYLPREDNISOLONE [Concomitant]
     Dosage: 2 MG, UNK
     Route: 048
     Dates: start: 20120912
  6. AMLODIPINE//AMLODIPINE BESILATE [Concomitant]
     Indication: HYPERTENSION
     Dosage: 2.5 MG, UNK
     Route: 048
  7. LANSOPRAZOLE. [Concomitant]
     Active Substance: LANSOPRAZOLE
     Indication: PROPHYLAXIS
     Dosage: 15 MG, UNK
     Route: 048
  8. LIPITOR [Concomitant]
     Active Substance: ATORVASTATIN CALCIUM
     Indication: HYPERLIPIDAEMIA
     Dosage: 5 MG, UNK
     Route: 048
  9. OXYCONTIN [Concomitant]
     Active Substance: OXYCODONE HYDROCHLORIDE
     Indication: BREAST CANCER
     Dosage: 60 MG, UNK
     Route: 048
  10. ZYLORIC [Concomitant]
     Active Substance: ALLOPURINOL
     Indication: HYPERURICAEMIA
     Dosage: 100 MG, UNK
     Route: 048
  11. PACLITAXEL. [Concomitant]
     Active Substance: PACLITAXEL
     Indication: BREAST CANCER
     Dosage: 120 MG, QW
     Route: 041
  12. MORPHINE [Concomitant]
     Active Substance: MORPHINE
     Indication: BREAST CANCER
     Dosage: 500 MG, UNK
     Route: 042
  13. MIDAZOLAM [Concomitant]
     Active Substance: MIDAZOLAM\MIDAZOLAM HYDROCHLORIDE
     Indication: BREAST CANCER
     Dosage: 60 MG, UNK
     Route: 042
  14. GRACEPTOR [Concomitant]
     Active Substance: TACROLIMUS
     Indication: RENAL TRANSPLANT
     Dosage: 3.5 MG, QD
     Route: 048
  15. AVASTIN [Concomitant]
     Active Substance: BEVACIZUMAB
     Indication: BREAST CANCER
     Dosage: 420 MG, QW2
     Route: 041
  16. CELLCEPT [Concomitant]
     Active Substance: MYCOPHENOLATE MOFETIL\MYCOPHENOLATE MOFETIL HYDROCHLORIDE
     Indication: RENAL TRANSPLANT
     Dosage: 1000 MG, UNK
     Route: 048
  17. TULOBUTEROL [Concomitant]
     Active Substance: TULOBUTEROL
     Indication: ASTHMA
     Dosage: 2 MG, UNK
     Route: 062
  18. CELLCEPT [Concomitant]
     Active Substance: MYCOPHENOLATE MOFETIL\MYCOPHENOLATE MOFETIL HYDROCHLORIDE
     Dosage: 750 MG, UNK
     Route: 048
     Dates: start: 20120912, end: 20130423
  19. GRACEPTOR [Concomitant]
     Active Substance: TACROLIMUS
     Dosage: 1.5 MG, UNK
     Route: 048
     Dates: start: 20130424

REACTIONS (3)
  - Breast cancer [Fatal]
  - Blood creatinine increased [Unknown]
  - Proteinuria [Not Recovered/Not Resolved]

NARRATIVE: CASE EVENT DATE: 20121204
